FAERS Safety Report 6741976-7 (Version None)
Quarter: 2010Q2

REPORT INFORMATION
  Report Type: 
  Country: None (occurrence: None)
  Receive Date: 20100526
  Receipt Date: 20100507
  Transmission Date: 20101027
  Serious: Yes (Other)
  Sender: FDA-Public Use
  Company Number: ES-ROCHE-704718

PATIENT
  Sex: Female

DRUGS (1)
  1. BONIVA [Suspect]
     Indication: OSTEOPOROSIS
     Route: 065

REACTIONS (5)
  - ABDOMINAL PAIN UPPER [None]
  - MYALGIA [None]
  - OESOPHAGEAL DISORDER [None]
  - PAIN [None]
  - RECTAL HAEMORRHAGE [None]
